FAERS Safety Report 15290624 (Version 1)
Quarter: 2018Q4

REPORT INFORMATION
  Report Type: Spontaneous
  Country: ES (occurrence: ES)
  Receive Date: 20180817
  Receipt Date: 20180817
  Transmission Date: 20190204
  Serious: Yes (Hospitalization)
  Sender: FDA-Public Use
  Company Number: ES-TEVA-2018-ES-942780

PATIENT
  Age: 66 Year
  Sex: Male

DRUGS (1)
  1. ANAGRELIDA RATIOPHARM 0,5 MG CAPSULAS DURAS EFG, 100 C?PSULAS [Suspect]
     Active Substance: ANAGRELIDE HYDROCHLORIDE
     Indication: ESSENTIAL THROMBOCYTHAEMIA
     Dosage: .5 MILLIGRAM DAILY;
     Route: 048
     Dates: start: 20180706, end: 20180714

REACTIONS (2)
  - Acute pulmonary oedema [Recovering/Resolving]
  - Cardiac failure congestive [Recovering/Resolving]

NARRATIVE: CASE EVENT DATE: 20180714
